FAERS Safety Report 24047760 (Version 1)
Quarter: 2024Q3

REPORT INFORMATION
  Report Type: Spontaneous
  Country: ES (occurrence: ES)
  Receive Date: 20240703
  Receipt Date: 20240703
  Transmission Date: 20241016
  Serious: Yes (Life-Threatening, Other)
  Sender: PFIZER
  Company Number: ES-BRISTOL-MYERS SQUIBB COMPANY-2024-099104

PATIENT
  Age: 59 Year
  Sex: Female

DRUGS (10)
  1. CARBOPLATIN [Suspect]
     Active Substance: CARBOPLATIN
     Dosage: UNK
     Dates: start: 202312
  2. PACLITAXEL [Suspect]
     Active Substance: PACLITAXEL
     Dosage: UNK
     Dates: start: 202312
  3. IPILIMUMAB [Suspect]
     Active Substance: IPILIMUMAB
     Indication: Lung neoplasm malignant
     Dosage: UNK
     Dates: start: 202312
  4. NIVOLUMAB [Suspect]
     Active Substance: NIVOLUMAB
     Indication: Lung neoplasm malignant
     Dosage: C1D1 TO C3D1 AND ADMINISTRATION OF NIVOLUMAB IN REGULAR REGIMEN PROHIBITED
     Dates: start: 202312, end: 202401
  5. NIVOLUMAB [Suspect]
     Active Substance: NIVOLUMAB
     Dosage: C4D1 (NIVOLUMAB IN DESENSITISATION REGIMEN AND IPILIMUMAB IN STANDARD REGIMEN)
     Dates: start: 202402
  6. DEXAMETHASONE [Concomitant]
     Active Substance: DEXAMETHASONE
     Dosage: 8 MG
     Dates: start: 202312
  7. PREDNISONE [Concomitant]
     Active Substance: PREDNISONE
     Indication: Prophylaxis
     Dosage: 60 MG
     Dates: start: 202401
  8. LORATADINE [Concomitant]
     Active Substance: LORATADINE
     Indication: Prophylaxis
     Dosage: 10 MG
     Dates: start: 202401
  9. ASPIRIN [Concomitant]
     Active Substance: ASPIRIN
     Indication: Prophylaxis
     Dosage: 350 MG
     Dates: start: 202401
  10. MONTELUKAST [Concomitant]
     Active Substance: MONTELUKAST SODIUM
     Indication: Prophylaxis
     Dosage: 10 MG
     Dates: start: 202401

REACTIONS (8)
  - Cardio-respiratory arrest [Unknown]
  - Hypersensitivity [Unknown]
  - Hypothyroidism [Recovered/Resolved]
  - Hepatitis [Unknown]
  - Oral dysaesthesia [Unknown]
  - Wheezing [Unknown]
  - Back pain [Unknown]
  - Oxygen saturation decreased [Unknown]

NARRATIVE: CASE EVENT DATE: 20231201
